FAERS Safety Report 10871652 (Version 1)
Quarter: 2015Q1

REPORT INFORMATION
  Report Type: Spontaneous
  Country: US (occurrence: None)
  Receive Date: 20150223
  Receipt Date: 20150223
  Transmission Date: 20150721
  Serious: Yes (Life-Threatening, Other)
  Sender: FDA-Public Use
  Company Number: None

PATIENT
  Age: 41 Year
  Sex: Male
  Weight: 88.45 kg

DRUGS (6)
  1. LIALDA [Concomitant]
     Active Substance: MESALAMINE
  2. CENTRUM MENS MULTIVITAMIN/MULTIMINERAL VITAMIN [Concomitant]
  3. HUMALOG INSULIN PENS [Concomitant]
  4. NIPRO [Concomitant]
  5. 81 MG ASPIRIN [Concomitant]
  6. NOVOLIN N [Suspect]
     Active Substance: INSULIN HUMAN
     Indication: DIABETES MELLITUS
     Route: 058
     Dates: start: 20110201, end: 20150201

REACTIONS (9)
  - Poor quality sleep [None]
  - Feeling abnormal [None]
  - Drug dose omission [None]
  - Unevaluable event [None]
  - Asthenia [None]
  - Hypersensitivity [None]
  - Diabetes mellitus inadequate control [None]
  - Memory impairment [None]
  - Flat affect [None]

NARRATIVE: CASE EVENT DATE: 20150201
